FAERS Safety Report 5281582-7 (Version None)
Quarter: 2007Q1

REPORT INFORMATION
  Report Type: 
  Country: None (occurrence: None)
  Receive Date: 20061222
  Receipt Date: 20060817
  Transmission Date: 20070707
  Serious: Yes (Disabling, Other)
  Sender: FDA-Public Use
  Company Number: 2006-0009656

PATIENT
  Age: 47 Year
  Sex: Male
  Weight: 110.2241 kg

DRUGS (4)
  1. VIREAD [Suspect]
     Dosage: 300 MG, 1 IN 1 D, ORAL
     Route: 048
     Dates: start: 20030402
  2. INVIRASE [Concomitant]
  3. NORVIR [Concomitant]
  4. EPIVIR [Concomitant]

REACTIONS (3)
  - LIPODYSTROPHY ACQUIRED [None]
  - NEUROPATHY [None]
  - TORTICOLLIS [None]
